FAERS Safety Report 23158220 (Version 3)
Quarter: 2024Q3

REPORT INFORMATION
  Report Type: Report from Study
  Country: US (occurrence: US)
  Receive Date: 20231108
  Receipt Date: 20240829
  Transmission Date: 20241017
  Serious: Yes (Other)
  Sender: BRISTOL MYERS SQUIBB
  Company Number: US-BRISTOL-MYERS SQUIBB COMPANY-2023-158791

PATIENT
  Age: 71 Year
  Sex: Male
  Weight: 71.67 kg

DRUGS (13)
  1. REVLIMID [Suspect]
     Active Substance: LENALIDOMIDE
     Indication: Plasma cell myeloma
     Dosage: 3WKS ON, 1 OFF
     Route: 048
  2. REVLIMID [Suspect]
     Active Substance: LENALIDOMIDE
     Dosage: ONCE DAILY
     Route: 048
  3. REVLIMID [Suspect]
     Active Substance: LENALIDOMIDE
     Route: 048
     Dates: start: 202312
  4. TAMSULOSIN HYDROCHLORIDE [Concomitant]
     Active Substance: TAMSULOSIN HYDROCHLORIDE
  5. ALBUTEROL SULFATE [Concomitant]
     Active Substance: ALBUTEROL SULFATE
  6. PREDNISONE [Concomitant]
     Active Substance: PREDNISONE
  7. SIROLIMUS [Concomitant]
     Active Substance: SIROLIMUS
  8. DEXAMETHASONE [Concomitant]
     Active Substance: DEXAMETHASONE
  9. FISH OIL [Concomitant]
     Active Substance: FISH OIL
  10. VITAMINS NOS [Concomitant]
     Active Substance: VITAMINS
  11. VITAMIN D3 [Concomitant]
     Active Substance: CHOLECALCIFEROL
  12. TESTOSTERONE [Concomitant]
     Active Substance: TESTOSTERONE
  13. ARMOUR THYROID [Concomitant]
     Active Substance: THYROID, PORCINE

REACTIONS (3)
  - Fatigue [Unknown]
  - Neuropathy peripheral [Unknown]
  - Peripheral swelling [Unknown]
